FAERS Safety Report 6258777-9 (Version None)
Quarter: 2009Q3

REPORT INFORMATION
  Report Type: 
  Country: None (occurrence: None)
  Receive Date: 20090707
  Receipt Date: 20090626
  Transmission Date: 20100115
  Serious: Yes (Hospitalization, Other)
  Sender: FDA-Public Use
  Company Number: US-MERCK-0903USA02260

PATIENT
  Age: 61 Year
  Sex: Female

DRUGS (6)
  1. FOSAMAX [Suspect]
     Indication: OSTEOPENIA
     Route: 048
     Dates: start: 19991001, end: 20080201
  2. FOSAMAX [Suspect]
     Route: 048
     Dates: start: 20000906
  3. FOSAMAX [Suspect]
     Route: 048
     Dates: start: 19991001, end: 20080201
  4. FOSAMAX [Suspect]
     Indication: OSTEOPOROSIS
     Route: 048
     Dates: start: 19991001, end: 20080201
  5. FOSAMAX [Suspect]
     Route: 048
     Dates: start: 20000906
  6. FOSAMAX [Suspect]
     Route: 048
     Dates: start: 19991001, end: 20080201

REACTIONS (16)
  - ABSCESS NECK [None]
  - ABSCESS ORAL [None]
  - ANKLE FRACTURE [None]
  - BLISTER [None]
  - DELIRIUM [None]
  - DRUG ADMINISTRATION ERROR [None]
  - DYSPHAGIA [None]
  - EAR PAIN [None]
  - EXOSTOSIS [None]
  - FRACTURE [None]
  - NEURALGIA [None]
  - ODYNOPHAGIA [None]
  - ORAL INFECTION [None]
  - OROPHARYNGEAL PAIN [None]
  - OSTEONECROSIS [None]
  - ROAD TRAFFIC ACCIDENT [None]
